FAERS Safety Report 19930548 (Version 20)
Quarter: 2025Q1

REPORT INFORMATION
  Report Type: Report from Study
  Country: US (occurrence: US)
  Receive Date: 20211007
  Receipt Date: 20250304
  Transmission Date: 20250409
  Serious: Yes (Hospitalization, Other)
  Sender: TAKEDA
  Company Number: US-TAKEDA-US202022046

PATIENT
  Age: 75 Year
  Sex: Female
  Weight: 123 kg

DRUGS (49)
  1. HUMAN IMMUNOGLOBULIN G [Suspect]
     Active Substance: HUMAN IMMUNOGLOBULIN G
     Indication: Immunodeficiency common variable
     Dosage: 16 GRAM, 1/WEEK
     Dates: start: 20171208
  2. HUMAN IMMUNOGLOBULIN G [Suspect]
     Active Substance: HUMAN IMMUNOGLOBULIN G
     Indication: Primary immunodeficiency syndrome
  3. HUMAN IMMUNOGLOBULIN G [Suspect]
     Active Substance: HUMAN IMMUNOGLOBULIN G
     Dosage: 12 GRAM, 1/WEEK
  4. HUMAN IMMUNOGLOBULIN G [Suspect]
     Active Substance: HUMAN IMMUNOGLOBULIN G
     Dosage: 14 GRAM, 1/WEEK
  5. HUMAN IMMUNOGLOBULIN G [Suspect]
     Active Substance: HUMAN IMMUNOGLOBULIN G
     Dosage: 10 GRAM, 1/WEEK
  6. HUMAN IMMUNOGLOBULIN G [Suspect]
     Active Substance: HUMAN IMMUNOGLOBULIN G
     Dosage: 9 GRAM, 1/WEEK
  7. HUMAN IMMUNOGLOBULIN G [Suspect]
     Active Substance: HUMAN IMMUNOGLOBULIN G
     Dosage: 8 GRAM, 1/WEEK
     Dates: start: 20240322
  8. HUMAN IMMUNOGLOBULIN G [Suspect]
     Active Substance: HUMAN IMMUNOGLOBULIN G
  9. HUMAN IMMUNOGLOBULIN G [Suspect]
     Active Substance: HUMAN IMMUNOGLOBULIN G
     Dosage: 8 GRAM, 1/WEEK
  10. DIPHENHYDRAMINE [Concomitant]
     Active Substance: DIPHENHYDRAMINE
     Indication: Product used for unknown indication
  11. DIPHENHYDRAMINE HYDROCHLORIDE [Concomitant]
     Active Substance: DIPHENHYDRAMINE HYDROCHLORIDE
  12. METOPROLOL SUCCINATE [Concomitant]
     Active Substance: METOPROLOL SUCCINATE
  13. ESTRADIOL [Concomitant]
     Active Substance: ESTRADIOL
  14. BREO ELLIPTA [Concomitant]
     Active Substance: FLUTICASONE FUROATE\VILANTEROL TRIFENATATE
     Indication: Product used for unknown indication
  15. DULOXETINE HYDROCHLORIDE [Concomitant]
     Active Substance: DULOXETINE HYDROCHLORIDE
  16. Glucosamine/chondroitin [Concomitant]
     Indication: Product used for unknown indication
  17. ZYRTEC [Concomitant]
     Active Substance: CETIRIZINE HYDROCHLORIDE
     Indication: Product used for unknown indication
  18. SELENIUM [Concomitant]
     Active Substance: SELENIUM
     Indication: Product used for unknown indication
  19. ACETAMINOPHEN [Concomitant]
     Active Substance: ACETAMINOPHEN
     Indication: Product used for unknown indication
  20. VITAMIN B [Concomitant]
     Active Substance: VITAMIN B
  21. GABAPENTIN [Concomitant]
     Active Substance: GABAPENTIN
  22. HYDROCHLOROTHIAZIDE [Concomitant]
     Active Substance: HYDROCHLOROTHIAZIDE
  23. MELOXICAM [Concomitant]
     Active Substance: MELOXICAM
  24. XARELTO [Concomitant]
     Active Substance: RIVAROXABAN
  25. VITAMIN D3 [Concomitant]
     Active Substance: CHOLECALCIFEROL
     Indication: Product used for unknown indication
  26. CHROMIUM PICOLINATE [Concomitant]
     Active Substance: CHROMIUM PICOLINATE
     Indication: Product used for unknown indication
  27. MAGNESIUM [Concomitant]
     Active Substance: MAGNESIUM
     Indication: Product used for unknown indication
  28. MYRBETRIQ [Concomitant]
     Active Substance: MIRABEGRON
  29. LOSARTAN POTASSIUM [Concomitant]
     Active Substance: LOSARTAN POTASSIUM
  30. LEVOTHYROXINE SODIUM [Concomitant]
     Active Substance: LEVOTHYROXINE SODIUM
  31. OMEPRAZOLE [Concomitant]
     Active Substance: OMEPRAZOLE
  32. LIDOCAINE [Concomitant]
     Active Substance: LIDOCAINE
  33. LIDOCAINE HYDROCHLORIDE [Concomitant]
     Active Substance: LIDOCAINE HYDROCHLORIDE
     Indication: Product used for unknown indication
  34. COENZYME Q10 [Concomitant]
     Active Substance: DIETARY SUPPLEMENT\UBIDECARENONE
     Indication: Product used for unknown indication
  35. EPINEPHRINE [Concomitant]
     Active Substance: EPINEPHRINE
     Indication: Product used for unknown indication
  36. DICLOFENAC SODIUM [Concomitant]
     Active Substance: DICLOFENAC SODIUM
     Indication: Product used for unknown indication
  37. ASPIRIN [Concomitant]
     Active Substance: ASPIRIN
     Indication: Product used for unknown indication
  38. VITAMIN B12 [Concomitant]
     Active Substance: CYANOCOBALAMIN
     Indication: Product used for unknown indication
  39. DULOXETINE [Concomitant]
     Active Substance: DULOXETINE
     Indication: Product used for unknown indication
  40. NATURE-THROID [Concomitant]
     Active Substance: THYROID, PORCINE
     Indication: Product used for unknown indication
  41. PREGABALIN [Concomitant]
     Active Substance: PREGABALIN
  42. VIVELLE-DOT [Concomitant]
     Active Substance: ESTRADIOL
  43. UNSPECIFIED INGREDIENT [Concomitant]
     Active Substance: UNSPECIFIED INGREDIENT
  44. GUAIFENESIN [Concomitant]
     Active Substance: GUAIFENESIN
  45. DEXTROMETHORPHAN [Concomitant]
     Active Substance: DEXTROMETHORPHAN
  46. ASPIRIN [Concomitant]
     Active Substance: ASPIRIN
  47. BENZONATATE [Concomitant]
     Active Substance: BENZONATATE
  48. CELEBREX [Concomitant]
     Active Substance: CELECOXIB
  49. AZATHIOPRINE [Concomitant]
     Active Substance: AZATHIOPRINE

REACTIONS (32)
  - COVID-19 [Recovered/Resolved]
  - Pneumonia [Recovered/Resolved]
  - Gastric infection [Recovered/Resolved]
  - Atrial fibrillation [Recovered/Resolved]
  - Pericardial effusion [Recovered/Resolved]
  - Cardiac failure congestive [Recovered/Resolved]
  - Respiratory tract infection viral [Unknown]
  - Limb injury [Recovered/Resolved]
  - Injury [Recovered/Resolved]
  - Pleural effusion [Recovered/Resolved]
  - Hypoaesthesia [Recovered/Resolved]
  - Nerve injury [Recovered/Resolved]
  - Skin infection [Recovered/Resolved]
  - Skin ulcer [Recovered/Resolved]
  - Impaired healing [Recovered/Resolved]
  - Wound [Recovered/Resolved]
  - Sneezing [Recovered/Resolved]
  - Intervertebral disc disorder [Recovered/Resolved]
  - Cardiac disorder [Recovered/Resolved]
  - Multiple allergies [Recovered/Resolved]
  - Weight fluctuation [Recovered/Resolved]
  - Fall [Recovered/Resolved]
  - Infection [Recovered/Resolved]
  - Infusion related hypersensitivity reaction [Recovered/Resolved]
  - Osteoporosis [Recovered/Resolved]
  - Influenza [Recovered/Resolved]
  - Contusion [Recovered/Resolved]
  - Injection site erythema [Recovered/Resolved]
  - Rash [Recovered/Resolved]
  - Chest discomfort [Recovered/Resolved]
  - Headache [Recovered/Resolved]
  - Infusion site pain [Recovered/Resolved]

NARRATIVE: CASE EVENT DATE: 20240311
